FAERS Safety Report 24832004 (Version 1)
Quarter: 2025Q1

REPORT INFORMATION
  Report Type: Spontaneous
  Country: US (occurrence: None)
  Receive Date: 20250109
  Receipt Date: 20250109
  Transmission Date: 20250408
  Serious: Yes (Other)
  Sender: FDA-CTU
  Company Number: None

PATIENT
  Age: 40 Year
  Sex: Female

DRUGS (2)
  1. TRIAMCINOLONE ACETONIDE [Suspect]
     Active Substance: TRIAMCINOLONE ACETONIDE
     Indication: Arthritis
     Route: 014
     Dates: start: 20250102, end: 20250102
  2. Triamcinolone 80mg [Concomitant]
     Dates: start: 20250102, end: 20250102

REACTIONS (2)
  - Pseudostroke [None]
  - Facial paralysis [None]

NARRATIVE: CASE EVENT DATE: 20250102
